FAERS Safety Report 24689193 (Version 1)
Quarter: 2024Q4

REPORT INFORMATION
  Report Type: Report from Study
  Country: MA (occurrence: MA)
  Receive Date: 20241203
  Receipt Date: 20241203
  Transmission Date: 20250114
  Serious: Yes (Death, Other)
  Sender: BOEHRINGER INGELHEIM
  Company Number: MA-BoehringerIngelheim-2024-BI-064595

PATIENT
  Age: 70 Year
  Sex: Male
  Weight: 80 kg

DRUGS (1)
  1. OFEV [Suspect]
     Active Substance: NINTEDANIB
     Indication: Product used for unknown indication

REACTIONS (4)
  - Death [Fatal]
  - Cardiac failure [Unknown]
  - Diarrhoea [Unknown]
  - Weight decreased [Unknown]

NARRATIVE: CASE EVENT DATE: 20241111
